FAERS Safety Report 24002111 (Version 3)
Quarter: 2024Q4

REPORT INFORMATION
  Report Type: Report from Study
  Country: US (occurrence: US)
  Receive Date: 20240622
  Receipt Date: 20241214
  Transmission Date: 20250114
  Serious: Yes (Hospitalization, Other)
  Sender: UCB
  Company Number: US-UCBSA-2024022145

PATIENT
  Sex: Male

DRUGS (6)
  1. FINTEPLA [Suspect]
     Active Substance: FENFLURAMINE
     Indication: Lennox-Gastaut syndrome
     Dosage: 5.90 MILLILITER, 2X/DAY (BID)
     Dates: start: 20240409
  2. FINTEPLA [Suspect]
     Active Substance: FENFLURAMINE
     Dosage: 2 MILLILITER, 2X/DAY (BID)
     Dates: start: 2024
  3. FINTEPLA [Suspect]
     Active Substance: FENFLURAMINE
     Dosage: 2 MILLILITER, 2X/DAY (BID)
     Dates: start: 2024
  4. FINTEPLA [Suspect]
     Active Substance: FENFLURAMINE
     Dosage: 3 MILLILITER, 2X/DAY (BID)
     Route: 048
     Dates: start: 2024
  5. FINTEPLA [Suspect]
     Active Substance: FENFLURAMINE
     Dosage: 4 MILLILITER
  6. CLOBAZAM [Concomitant]
     Active Substance: CLOBAZAM
     Indication: Product used for unknown indication
     Dosage: 20 MILLIGRAM, 2X/DAY (BID)

REACTIONS (8)
  - Seizure cluster [Not Recovered/Not Resolved]
  - Seizure [Recovered/Resolved]
  - Mitral valve incompetence [Recovered/Resolved]
  - Heart rate increased [Not Recovered/Not Resolved]
  - Respiration abnormal [Recovered/Resolved]
  - Insomnia [Recovering/Resolving]
  - Anxiety [Unknown]
  - Pulmonary arterial pressure increased [Recovered/Resolved]

NARRATIVE: CASE EVENT DATE: 20240101
